FAERS Safety Report 7419398-5 (Version None)
Quarter: 2011Q2

REPORT INFORMATION
  Report Type: 
  Country: None (occurrence: None)
  Receive Date: 20110416
  Receipt Date: 20110411
  Transmission Date: 20111010
  Serious: Yes (Other)
  Sender: FDA-Public Use
  Company Number: FR-ABBOTT-11P-056-0718285-00

PATIENT
  Sex: Male

DRUGS (4)
  1. AMOXICILLINE [Suspect]
     Indication: HELICOBACTER INFECTION
     Dosage: THE PATIENT RECEIVED ONE SINGLE DOSE
     Route: 048
     Dates: start: 20110210, end: 20110210
  2. ZECLAR [Suspect]
     Indication: HELICOBACTER INFECTION
     Dosage: THE PATIENT RECEIVED ONE SINGLE DOSE
     Route: 048
     Dates: start: 20110210, end: 20110210
  3. ESOMEPRAZOLE [Concomitant]
     Indication: HELICOBACTER INFECTION
     Dates: start: 20110210
  4. LEVOTHYROXINE SODIUM [Concomitant]
     Indication: HYPOTHYROIDISM

REACTIONS (6)
  - VOMITING [None]
  - FACE OEDEMA [None]
  - PRURITUS [None]
  - FEELING HOT [None]
  - URTICARIA [None]
  - ANAPHYLACTIC REACTION [None]
